FAERS Safety Report 6675683-6 (Version None)
Quarter: 2010Q2

REPORT INFORMATION
  Report Type: 
  Country: None (occurrence: None)
  Receive Date: 20100409
  Receipt Date: 20100326
  Transmission Date: 20101027
  Serious: Yes (Hospitalization)
  Sender: FDA-Public Use
  Company Number: US-ELI_LILLY_AND_COMPANY-US201003008548

PATIENT
  Sex: Female

DRUGS (3)
  1. FORTEO [Suspect]
     Indication: OSTEOPOROSIS
     Dosage: 20 UG, DAILY (1/D)
     Dates: end: 20100301
  2. LIPITOR [Concomitant]
     Dosage: UNK, DAILY (1/D)
  3. LISINOPRIL [Concomitant]
     Dosage: UNK, DAILY (1/D)

REACTIONS (1)
  - HIP FRACTURE [None]
